FAERS Safety Report 8828869 (Version 1)
Quarter: 2012Q4

REPORT INFORMATION
  Report Type: Report from Study
  Country: US (occurrence: US)
  Receive Date: 20121008
  Receipt Date: 20121008
  Transmission Date: 20130627
  Serious: Yes (Hospitalization)
  Sender: FDA-Public Use
  Company Number: US-ROCHE-1140196

PATIENT
  Age: 54 Year
  Sex: Male

DRUGS (3)
  1. PEGASYS [Suspect]
     Indication: HEPATITIS C
     Route: 065
     Dates: start: 20120702
  2. COPEGUS [Suspect]
     Indication: HEPATITIS C
     Dosage: divided doses
     Route: 065
     Dates: start: 20120702
  3. TELAPREVIR [Suspect]
     Indication: HEPATITIS C
     Route: 065
     Dates: start: 20120702

REACTIONS (5)
  - Haematochezia [Unknown]
  - Blood count abnormal [Unknown]
  - Body temperature increased [Unknown]
  - Heart rate increased [Unknown]
  - Hypotension [Unknown]
